FAERS Safety Report 25299086 (Version 1)
Quarter: 2025Q2

REPORT INFORMATION
  Report Type: Spontaneous
  Country: TW (occurrence: TW)
  Receive Date: 20250512
  Receipt Date: 20250512
  Transmission Date: 20250716
  Serious: Yes (Other)
  Sender: UCB
  Company Number: TW-GSK-TW2025APC052053

PATIENT
  Age: 55 Year
  Sex: Female
  Weight: 57.5 kg

DRUGS (19)
  1. KEPPRA [Suspect]
     Active Substance: LEVETIRACETAM
     Indication: Seizure prophylaxis
     Dosage: 500 MG, BID
     Route: 041
     Dates: start: 20250323, end: 20250331
  2. KEPPRA [Suspect]
     Active Substance: LEVETIRACETAM
     Indication: Seizure prophylaxis
     Dosage: 1000 MG, BID
     Route: 048
     Dates: start: 20250331, end: 20250412
  3. MANNITOL [Suspect]
     Active Substance: MANNITOL
     Indication: Reduction of increased intracranial pressure
  4. CEFMETAZOLE [Suspect]
     Active Substance: CEFMETAZOLE
     Indication: Infection prophylaxis
  5. CODEINE PHOSPHATE [Suspect]
     Active Substance: CODEINE PHOSPHATE
     Indication: Postoperative analgesia
  6. ACECLOFENAC [Suspect]
     Active Substance: ACECLOFENAC
     Indication: Postoperative analgesia
  7. NICARDIPINE [Suspect]
     Active Substance: NICARDIPINE
     Indication: Hypotension
  8. TRANEXAMIC ACID [Suspect]
     Active Substance: TRANEXAMIC ACID
     Indication: Haemostasis
  9. LANSOPRAZOLE [Suspect]
     Active Substance: LANSOPRAZOLE
     Indication: Gastrointestinal disorder prophylaxis
     Dosage: 60 MG, QD
     Route: 042
     Dates: start: 20250323, end: 20250326
  10. LANSOPRAZOLE [Suspect]
     Active Substance: LANSOPRAZOLE
     Dosage: 30 MG, QD
  11. LANSOPRAZOLE [Suspect]
     Active Substance: LANSOPRAZOLE
     Indication: Gastrointestinal disorder prophylaxis
     Dosage: 30 MG, QD
     Route: 048
     Dates: start: 20250328, end: 20250410
  12. AMANTADINE [Concomitant]
     Active Substance: AMANTADINE
     Indication: Cognitive disorder
     Dosage: 1000 MG, BID
     Route: 048
     Dates: start: 20250325, end: 20250410
  13. DIFLUCAN [Concomitant]
     Active Substance: FLUCONAZOLE
     Indication: Urinary tract candidiasis
     Dosage: 400 MG, QD
     Route: 041
     Dates: start: 20250404, end: 20250406
  14. FLUENE [Concomitant]
     Indication: Urinary tract candidiasis
     Dosage: 200 MG, QD
     Dates: start: 20250407, end: 20250410
  15. MEPRON [METHYLPREDNISOLONE SODIUM SUCCINATE] [Concomitant]
     Indication: Laryngeal oedema
     Dosage: 40 MG, TID
     Route: 042
     Dates: start: 20250408, end: 20250409
  16. COMBIVENT [Concomitant]
     Active Substance: ALBUTEROL SULFATE\IPRATROPIUM BROMIDE
     Indication: Dyspnoea
     Route: 055
     Dates: start: 20250410
  17. U-VANCO [Concomitant]
     Indication: Pneumonia
     Dosage: 100 MG, TID (EVERY 8 HOURS)
     Route: 042
     Dates: start: 20250325, end: 20250407
  18. METFORMIN [Concomitant]
     Active Substance: METFORMIN HYDROCHLORIDE
     Indication: Product used for unknown indication
  19. LACOSAMIDE [Concomitant]
     Active Substance: LACOSAMIDE
     Indication: Epilepsy
     Dosage: 100 MG, BID
     Route: 048

REACTIONS (1)
  - Rash erythematous [Recovered/Resolved]

NARRATIVE: CASE EVENT DATE: 20250410
